FAERS Safety Report 5138361-0 (Version None)
Quarter: 2006Q4

REPORT INFORMATION
  Report Type: 
  Country: None (occurrence: None)
  Receive Date: 20061024
  Receipt Date: 20061009
  Transmission Date: 20070319
  Serious: Yes (Other)
  Sender: FDA-Public Use
  Company Number: PAR_0825_2006

PATIENT
  Age: 66 Year
  Sex: Male
  Weight: 142.8831 kg

DRUGS (6)
  1. ISOPTIN SR [Suspect]
     Indication: ATRIAL FLUTTER
     Dosage: 240 MG QDAY PO
     Route: 048
  2. ISOPTIN SR [Suspect]
     Indication: TACHYCARDIA
     Dosage: 240 MG QDAY PO
     Route: 048
  3. WARFARIN SODIUM [Concomitant]
  4. ASCORBIC ACID [Concomitant]
  5. VITAMIN E [Concomitant]
  6. DIABET [Concomitant]

REACTIONS (9)
  - ARRHYTHMIA [None]
  - DIZZINESS [None]
  - DRUG INEFFECTIVE [None]
  - DYSPNOEA [None]
  - EXTRASYSTOLES [None]
  - HEART RATE INCREASED [None]
  - NONSPECIFIC REACTION [None]
  - PHARMACEUTICAL PRODUCT COMPLAINT [None]
  - THERAPEUTIC RESPONSE UNEXPECTED WITH DRUG SUBSTITUTION [None]
